FAERS Safety Report 6832932-9 (Version None)
Quarter: 2010Q3

REPORT INFORMATION
  Report Type: 
  Country: None (occurrence: None)
  Receive Date: 20100712
  Receipt Date: 20070319
  Transmission Date: 20110219
  Serious: No
  Sender: FDA-Public Use
  Company Number: US-PFIZER INC-2007022017

PATIENT
  Sex: Male
  Weight: 95.25 kg

DRUGS (9)
  1. CHANTIX [Suspect]
     Indication: SMOKING CESSATION THERAPY
     Dates: start: 20070312
  2. WARFARIN SODIUM [Suspect]
     Indication: THROMBOSIS
  3. PRILOSEC [Concomitant]
  4. ACETYLSALICYLIC ACID [Concomitant]
  5. TOPROL-XL [Concomitant]
  6. AMARYL [Concomitant]
  7. ALTACE [Concomitant]
  8. LIPITOR [Concomitant]
  9. ISOSORBIDE MONONITRATE [Concomitant]

REACTIONS (1)
  - INTERNATIONAL NORMALISED RATIO ABNORMAL [None]
